FAERS Safety Report 10440012 (Version 1)
Quarter: 2014Q3

REPORT INFORMATION
  Report Type: Spontaneous
  Country: US (occurrence: US)
  Receive Date: 20140908
  Receipt Date: 20140908
  Transmission Date: 20150326
  Serious: No
  Sender: FDA-Public Use
  Company Number: US-BRISTOL-MYERS SQUIBB COMPANY-20082988

PATIENT
  Age: 57 Year
  Sex: Male
  Weight: 92.97 kg

DRUGS (5)
  1. ABILIFY [Suspect]
     Active Substance: ARIPIPRAZOLE
     Indication: DEPRESSION
     Dosage: LAST DOSE 2MG TABS
  2. ABILIFY [Suspect]
     Active Substance: ARIPIPRAZOLE
     Indication: TREMOR
     Dosage: LAST DOSE 2MG TABS
  3. XANAX [Concomitant]
     Active Substance: ALPRAZOLAM
  4. VALIUM [Concomitant]
     Active Substance: DIAZEPAM
  5. CELEXA [Concomitant]
     Active Substance: CITALOPRAM HYDROBROMIDE

REACTIONS (1)
  - Wrong technique in drug usage process [Unknown]
